FAERS Safety Report 12530675 (Version 2)
Quarter: 2016Q3

REPORT INFORMATION
  Report Type: Report from Study
  Country: FR (occurrence: FR)
  Receive Date: 20160706
  Receipt Date: 20160805
  Transmission Date: 20161109
  Serious: Yes (Hospitalization)
  Sender: FDA-Public Use
  Company Number: FR-PFIZER INC-2016317530

PATIENT
  Age: 58 Year
  Sex: Female
  Weight: 52.5 kg

DRUGS (5)
  1. PLITICAN [Concomitant]
     Active Substance: ALIZAPRIDE HYDROCHLORIDE
     Indication: NAUSEA
     Dosage: 50 MG, EVERY 8 HOURS
     Route: 042
     Dates: start: 20160613
  2. MORPHINE [Concomitant]
     Active Substance: MORPHINE
     Indication: PAIN
     Dosage: 100 MG/ML
     Route: 042
     Dates: start: 20160610
  3. PALBOCICLIB [Suspect]
     Active Substance: PALBOCICLIB
     Indication: BREAST CANCER METASTATIC
     Dosage: UNK
     Route: 048
     Dates: start: 20160602, end: 20160620
  4. LOVENOX [Concomitant]
     Active Substance: ENOXAPARIN SODIUM
     Indication: ANTICOAGULANT THERAPY
     Dosage: 4000 IU, DAILY
     Route: 058
     Dates: start: 20160611
  5. PANTOPRAZOLE [Concomitant]
     Active Substance: PANTOPRAZOLE SODIUM
     Indication: GASTROOESOPHAGEAL REFLUX DISEASE
     Dosage: 40 MG, DAILY
     Route: 042
     Dates: start: 20160616

REACTIONS (4)
  - Haemoglobin decreased [Recovered/Resolved]
  - Bacillus bacteraemia [Recovering/Resolving]
  - Febrile neutropenia [Recovering/Resolving]
  - Platelet count abnormal [Unknown]

NARRATIVE: CASE EVENT DATE: 20160616
